FAERS Safety Report 4665539-2 (Version None)
Quarter: 2005Q2

REPORT INFORMATION
  Report Type: 
  Country: None (occurrence: None)
  Receive Date: 20050518
  Receipt Date: 20050518
  Transmission Date: 20051028
  Serious: No
  Sender: FDA-Public Use
  Company Number: None

PATIENT
  Age: 57 Year
  Sex: Female

DRUGS (1)
  1. SOLU-MEDROL [Suspect]

REACTIONS (9)
  - DIFFICULTY IN WALKING [None]
  - DYSPNOEA [None]
  - FALL [None]
  - FRACTURE [None]
  - GASTRIC DISORDER [None]
  - PAIN IN EXTREMITY [None]
  - TOOTH LOSS [None]
  - VISION BLURRED [None]
  - WEIGHT INCREASED [None]
